FAERS Safety Report 4527522-7 (Version None)
Quarter: 2004Q4

REPORT INFORMATION
  Report Type: 
  Country: None (occurrence: None)
  Receive Date: 20041130
  Receipt Date: 20040921
  Transmission Date: 20050328
  Serious: No
  Sender: FDA-Public Use
  Company Number: WAES 0409USA01969

PATIENT
  Age: 62 Year
  Sex: Male
  Weight: 72.1219 kg

DRUGS (2)
  1. ZETIA [Suspect]
     Indication: HYPERCHOLESTEROLAEMIA
     Dosage: 10 MG/DAILY/PO
     Route: 048
     Dates: start: 20040629, end: 20040920
  2. PRAVACHOL [Concomitant]

REACTIONS (2)
  - OEDEMA [None]
  - SWELLING FACE [None]
